FAERS Safety Report 8215786-8 (Version None)
Quarter: 2012Q1

REPORT INFORMATION
  Report Type: 
  Country: None (occurrence: None)
  Receive Date: 20120316
  Receipt Date: 20120307
  Transmission Date: 20120608
  Serious: Yes (Hospitalization, Other)
  Sender: FDA-Public Use
  Company Number: US-ROCHE-794257

PATIENT
  Sex: Female
  Weight: 90.8 kg

DRUGS (2)
  1. ACCUTANE [Suspect]
     Route: 065
     Dates: start: 19960715, end: 19961201
  2. ACCUTANE [Suspect]
     Indication: ACNE
     Route: 065
     Dates: start: 19920101, end: 19930101

REACTIONS (8)
  - LOWER GASTROINTESTINAL HAEMORRHAGE [None]
  - DIVERTICULITIS [None]
  - DEPRESSION [None]
  - HAEMORRHOIDS [None]
  - INFLAMMATORY BOWEL DISEASE [None]
  - COLITIS ULCERATIVE [None]
  - BLOOD CHOLESTEROL INCREASED [None]
  - EMOTIONAL DISTRESS [None]
